FAERS Safety Report 5178021-3 (Version None)
Quarter: 2006Q4

REPORT INFORMATION
  Report Type: 
  Country: None (occurrence: None)
  Receive Date: 20061208
  Receipt Date: 20061128
  Transmission Date: 20070319
  Serious: Yes (Other)
  Sender: FDA-Public Use
  Company Number: 2006136580

PATIENT
  Age: 64 Year
  Sex: Female
  Weight: 97.0698 kg

DRUGS (5)
  1. LYRICA [Suspect]
     Indication: POST HERPETIC NEURALGIA
     Dosage: 225 MG (75 MG, 3 IN 1 D)
     Dates: start: 20050101
  2. LIPITOR [Concomitant]
  3. AVAPRO [Concomitant]
  4. TAMOXIFEN CITRATE [Concomitant]
  5. METFORMIN HCL [Concomitant]

REACTIONS (4)
  - DEPRESSION [None]
  - DRUG INEFFECTIVE [None]
  - GAIT DISTURBANCE [None]
  - POST HERPETIC NEURALGIA [None]
